FAERS Safety Report 25206255 (Version 2)
Quarter: 2025Q2

REPORT INFORMATION
  Report Type: Spontaneous
  Country: US (occurrence: US)
  Receive Date: 20250417
  Receipt Date: 20250514
  Transmission Date: 20250716
  Serious: Yes (Hospitalization)
  Sender: RIGEL PHARMACEUTICALS
  Company Number: US-RIGEL PHARMACEUTICALS, INC-20250400062

PATIENT
  Sex: Male

DRUGS (3)
  1. REZLIDHIA [Suspect]
     Active Substance: OLUTASIDENIB
     Indication: Thrombocytopenia
     Dosage: 150 MG,BID
     Route: 048
  2. REZLIDHIA [Suspect]
     Active Substance: OLUTASIDENIB
     Indication: Myelodysplastic syndrome
  3. REZLIDHIA [Suspect]
     Active Substance: OLUTASIDENIB
     Indication: Monoclonal gammopathy

REACTIONS (2)
  - Hospitalisation [Unknown]
  - Off label use [Unknown]
